FAERS Safety Report 6696073-6 (Version None)
Quarter: 2010Q2

REPORT INFORMATION
  Report Type: 
  Country: None (occurrence: None)
  Receive Date: 20100419
  Receipt Date: 20091207
  Transmission Date: 20101027
  Serious: Yes (Hospitalization)
  Sender: FDA-Public Use
  Company Number: 1-20945026

PATIENT
  Age: 53 Year
  Sex: Female
  Weight: 100.7893 kg

DRUGS (11)
  1. AMMONUL [Suspect]
     Dosage: 5,5 G/M^2, INTRAVENOUS
     Route: 042
     Dates: start: 20091205, end: 20091215
  2. LACTULOSE ENEMAS [Concomitant]
  3. RIFAXIMIN [Concomitant]
  4. DOCUSATE SODIUM [Concomitant]
  5. NEXIUM [Concomitant]
  6. LIDOCAINE [Concomitant]
  7. SOLU-MEDROL [Concomitant]
  8. CELLCEPT [Concomitant]
  9. FOLIC ACID [Concomitant]
  10. FETANYL PATCH [Concomitant]
  11. LANTUS [Concomitant]

REACTIONS (2)
  - AMMONIA INCREASED [None]
  - DRUG INEFFECTIVE [None]
